FAERS Safety Report 6255690-8 (Version None)
Quarter: 2009Q2

REPORT INFORMATION
  Report Type: 
  Country: None (occurrence: None)
  Receive Date: 20090618
  Receipt Date: 20090610
  Transmission Date: 20091009
  Serious: Yes (Life-Threatening)
  Sender: FDA-Public Use
  Company Number: GB-IGSA-IG575

PATIENT
  Age: 62 Year
  Sex: Male

DRUGS (1)
  1. IMMUNE GLOBULIN (HUMAN) [Suspect]

REACTIONS (1)
  - CEREBROVASCULAR ACCIDENT [None]
